FAERS Safety Report 10102094 (Version 1)
Quarter: 2014Q2

REPORT INFORMATION
  Report Type: Spontaneous
  Country: US (occurrence: None)
  Receive Date: 20140423
  Receipt Date: 20140423
  Transmission Date: 20141212
  Serious: Yes (Death)
  Sender: FDA-Public Use
  Company Number: None

PATIENT
  Age: 77 Year
  Sex: Female

DRUGS (6)
  1. CLOZAPINE [Suspect]
     Indication: SCHIZOPHRENIA
     Dosage: 25MG BID + , 250MG QHS, ORAL
     Route: 048
  2. HALOPERIDOL [Suspect]
     Indication: SCHIZOPHRENIA
  3. ARICEPT [Concomitant]
  4. REQUIP [Concomitant]
  5. CALCIUM [Concomitant]
  6. VITAMIN D [Concomitant]

REACTIONS (4)
  - Cerebrovascular accident [None]
  - Coma [None]
  - Dysphagia [None]
  - Neck pain [None]
